FAERS Safety Report 12975019 (Version 1)
Quarter: 2016Q4

REPORT INFORMATION
  Report Type: Report from Study
  Country: US (occurrence: US)
  Receive Date: 20161125
  Receipt Date: 20161125
  Transmission Date: 20170207
  Serious: Yes (Other)
  Sender: FDA-Public Use
  Company Number: US-AMGEN-USASL2016163671

PATIENT
  Age: 61 Year
  Sex: Female

DRUGS (3)
  1. ENBREL [Suspect]
     Active Substance: ETANERCEPT
     Indication: OSTEOPOROSIS
  2. ENBREL [Suspect]
     Active Substance: ETANERCEPT
     Indication: RHEUMATOID ARTHRITIS
     Dosage: 50 MG, QWK
     Route: 065
     Dates: start: 201610
  3. ENBREL [Suspect]
     Active Substance: ETANERCEPT
     Indication: OSTEOARTHRITIS

REACTIONS (21)
  - Hypophagia [Unknown]
  - Foot deformity [Unknown]
  - Malaise [Unknown]
  - Wrist surgery [Unknown]
  - Flushing [Unknown]
  - Limb operation [Unknown]
  - Visual impairment [Unknown]
  - Papule [Unknown]
  - Hot flush [Unknown]
  - Joint swelling [Unknown]
  - Bedridden [Unknown]
  - Tooth loss [Unknown]
  - Shoulder operation [Unknown]
  - Knee arthroplasty [Unknown]
  - Toe operation [Unknown]
  - Gait disturbance [Unknown]
  - Fall [Unknown]
  - Off label use [Unknown]
  - Cyst [Unknown]
  - Depressed mood [Unknown]
  - Constipation [Unknown]

NARRATIVE: CASE EVENT DATE: 2016
